FAERS Safety Report 20082089 (Version 1)
Quarter: 2021Q4

REPORT INFORMATION
  Report Type: Spontaneous
  Country: US (occurrence: None)
  Receive Date: 20211117
  Receipt Date: 20211117
  Transmission Date: 20220303
  Serious: Yes (Life-Threatening, Disabling, Other)
  Sender: FDA-Public Use
  Company Number: None

PATIENT
  Age: 44 Year
  Sex: Male
  Weight: 74.25 kg

DRUGS (1)
  1. FINASTERIDE [Suspect]
     Active Substance: FINASTERIDE
     Indication: Hair growth abnormal
     Dosage: OTHER QUANTITY : 1 TABLET(S);?FREQUENCY : DAILY;?
     Route: 048
     Dates: start: 20211022, end: 20211110

REACTIONS (9)
  - Depression [None]
  - Irritability [None]
  - Anxiety [None]
  - Paranoia [None]
  - Fear [None]
  - Tremor [None]
  - Chills [None]
  - Dysuria [None]
  - Dyschezia [None]

NARRATIVE: CASE EVENT DATE: 20211110
